FAERS Safety Report 19414920 (Version 1)
Quarter: 2021Q2

REPORT INFORMATION
  Report Type: Report from Study
  Country: US (occurrence: US)
  Receive Date: 20210615
  Receipt Date: 20210615
  Transmission Date: 20210717
  Serious: No
  Sender: FDA-Public Use
  Company Number: NVSC2021US133642

PATIENT
  Sex: Male

DRUGS (1)
  1. ENTRESTO [Suspect]
     Active Substance: SACUBITRIL\VALSARTAN
     Indication: PRODUCT USED FOR UNKNOWN INDICATION
     Dosage: (49/51 MG), BID
     Route: 048
     Dates: start: 20201106

REACTIONS (3)
  - Throat clearing [Unknown]
  - Weight decreased [Recovering/Resolving]
  - Hypotension [Unknown]
